FAERS Safety Report 6192255-0 (Version None)
Quarter: 2009Q2

REPORT INFORMATION
  Report Type: 
  Country: None (occurrence: None)
  Receive Date: 20090515
  Receipt Date: 20090508
  Transmission Date: 20091009
  Serious: Yes (Hospitalization, Other)
  Sender: FDA-Public Use
  Company Number: DE-JNJCH-2009012805

PATIENT
  Sex: Female

DRUGS (1)
  1. REGAINE FRAUEN [Suspect]
     Indication: DRUG USE FOR UNKNOWN INDICATION
     Dosage: TEXT:UNKNOWN
     Route: 061

REACTIONS (6)
  - ATRIAL FIBRILLATION [None]
  - BALANCE DISORDER [None]
  - CARDIAC FLUTTER [None]
  - CEREBROVASCULAR ACCIDENT [None]
  - HYPERTENSION [None]
  - TRANSIENT ISCHAEMIC ATTACK [None]
